FAERS Safety Report 7946910-X (Version None)
Quarter: 2011Q4

REPORT INFORMATION
  Report Type: 
  Country: None (occurrence: None)
  Receive Date: 20111129
  Receipt Date: 20111123
  Transmission Date: 20120403
  Serious: Yes (Death, Other)
  Sender: FDA-Public Use
  Company Number: RU-PFIZER INC-2007072190

PATIENT
  Age: 60 Year
  Sex: Male
  Weight: 89.5 kg

DRUGS (3)
  1. SORBIFER DURULES [Concomitant]
     Dosage: UNK
     Route: 048
     Dates: start: 20070813
  2. SUNITINIB MALATE [Suspect]
     Indication: RENAL CANCER
     Dosage: 50 MG, 1X/DAY
     Route: 048
     Dates: start: 20060410, end: 20070813
  3. LISINOPRIL [Concomitant]
     Route: 048
     Dates: start: 20060501

REACTIONS (2)
  - HAEMOGLOBIN DECREASED [None]
  - PNEUMONIA [None]
